FAERS Safety Report 19573731 (Version 2)
Quarter: 2021Q3

REPORT INFORMATION
  Report Type: Spontaneous
  Country: TR (occurrence: TR)
  Receive Date: 20210717
  Receipt Date: 20210813
  Transmission Date: 20211014
  Serious: No
  Sender: FDA-Public Use
  Company Number: TR-LUPIN PHARMACEUTICALS INC.-2021-12131

PATIENT
  Age: 29 Year
  Sex: Female

DRUGS (1)
  1. CEFUROXIME. [Suspect]
     Active Substance: CEFUROXIME
     Indication: WOUND INFECTION STAPHYLOCOCCAL
     Dosage: 1 GRAM 2 X 1
     Route: 065

REACTIONS (1)
  - Exposure during pregnancy [Unknown]
